FAERS Safety Report 15758844 (Version 1)
Quarter: 2018Q4

REPORT INFORMATION
  Report Type: Spontaneous
  Country: DE (occurrence: DE)
  Receive Date: 20181225
  Receipt Date: 20181225
  Transmission Date: 20190205
  Serious: Yes (Hospitalization, Other)
  Sender: FDA-Public Use
  Company Number: PHHY2018DE193675

PATIENT
  Age: 56 Year
  Sex: Female
  Weight: 100 kg

DRUGS (9)
  1. ENDOXAN [Suspect]
     Active Substance: CYCLOPHOSPHAMIDE
     Dosage: 1280 MG, Q2W
     Route: 042
     Dates: start: 20180723
  2. NEOTAXAN [Suspect]
     Active Substance: PACLITAXEL
     Dosage: 160 MG, QW
     Route: 042
     Dates: start: 20181018
  3. EPI TEVA [Concomitant]
     Active Substance: EPIRUBICIN HYDROCHLORIDE
     Indication: BREAST CANCER
     Dosage: 190 MG, QW
     Route: 042
     Dates: start: 20180712
  4. TORASEMID [Concomitant]
     Active Substance: TORSEMIDE
     Indication: PRODUCT USED FOR UNKNOWN INDICATION
     Dosage: 5 MG, QD (1/2-0-0)
     Route: 065
  5. BISOPROLOL [Concomitant]
     Active Substance: BISOPROLOL
     Indication: PRODUCT USED FOR UNKNOWN INDICATION
     Dosage: 3.75 MG, QD (1-0-0)
     Route: 065
  6. EPI TEVA [Concomitant]
     Active Substance: EPIRUBICIN HYDROCHLORIDE
     Dosage: 190 MG, Q2W
     Route: 042
     Dates: start: 20180823
  7. RAMIPRIL. [Concomitant]
     Active Substance: RAMIPRIL
     Indication: PRODUCT USED FOR UNKNOWN INDICATION
     Dosage: 10 MG, QD (1-0-0)
     Route: 065
  8. NEOTAXAN [Suspect]
     Active Substance: PACLITAXEL
     Indication: BREAST CANCER
     Dosage: 160 MG, QW
     Route: 042
     Dates: start: 20180906
  9. ENDOXAN [Suspect]
     Active Substance: CYCLOPHOSPHAMIDE
     Indication: BREAST CANCER
     Dosage: 1280 MG, Q2W
     Route: 042
     Dates: start: 20180712

REACTIONS (4)
  - Pneumonitis [Unknown]
  - Cyanosis [Unknown]
  - Dyspnoea [Unknown]
  - Pyrexia [Unknown]

NARRATIVE: CASE EVENT DATE: 20181027
